FAERS Safety Report 7579662-6 (Version None)
Quarter: 2011Q2

REPORT INFORMATION
  Report Type: 
  Country: None (occurrence: None)
  Receive Date: 20110629
  Receipt Date: 20110613
  Transmission Date: 20111010
  Serious: Yes (Hospitalization, Other)
  Sender: FDA-Public Use
  Company Number: US-BAYER-201041799NA

PATIENT
  Age: 21 Year
  Sex: Female
  Weight: 58.957 kg

DRUGS (3)
  1. YASMIN [Suspect]
     Indication: CONTRACEPTION
     Dosage: UNK
     Route: 048
     Dates: start: 20060627, end: 20070917
  2. NSAID'S [Concomitant]
     Route: 048
  3. ASCORBIC ACID [Concomitant]
     Dosage: UNK
     Route: 048
     Dates: start: 20070101, end: 20080101

REACTIONS (3)
  - PAGET-SCHROETTER SYNDROME [None]
  - PAIN [None]
  - THROMBOSIS [None]
